FAERS Safety Report 10772287 (Version 1)
Quarter: 2015Q1

REPORT INFORMATION
  Report Type: Report from Study
  Country: CA (occurrence: CA)
  Receive Date: 20150207
  Receipt Date: 20150207
  Transmission Date: 20150721
  Serious: Yes (Death, Hospitalization)
  Sender: FDA-Public Use
  Company Number: CA-JNJFOC-20150201578

PATIENT
  Age: 27 Year
  Sex: Female

DRUGS (3)
  1. COCAINE [Concomitant]
     Active Substance: COCAINE
     Indication: PRODUCT USED FOR UNKNOWN INDICATION
     Route: 042
  2. TYLENOL EXTRA STRENGTH [Suspect]
     Active Substance: ACETAMINOPHEN
     Indication: PRODUCT USED FOR UNKNOWN INDICATION
     Dosage: STRENGTH: 500 MG
     Route: 048
     Dates: start: 19930309, end: 19930309
  3. ETHANOL [Concomitant]
     Active Substance: ALCOHOL
     Indication: PRODUCT USED FOR UNKNOWN INDICATION
     Route: 065

REACTIONS (11)
  - Overdose [Fatal]
  - Acute hepatic failure [Fatal]
  - Encephalopathy [None]
  - Aggression [None]
  - Coma [None]
  - Hypoprothrombinaemia [Unknown]
  - Blood creatinine increased [None]
  - Brain oedema [Fatal]
  - Shock [Fatal]
  - General physical health deterioration [None]
  - Agitation [None]
